FAERS Safety Report 13909993 (Version 5)
Quarter: 2018Q1

REPORT INFORMATION
  Report Type: Report from Study
  Country: GB (occurrence: GB)
  Receive Date: 20170828
  Receipt Date: 20180216
  Transmission Date: 20180508
  Serious: Yes (Death, Hospitalization, Disabling, Other)
  Sender: FDA-Public Use
  Company Number: PHHY2017GB099719

PATIENT
  Age: 68 Year
  Sex: Male
  Weight: 125 kg

DRUGS (6)
  1. CARVEDILOL. [Concomitant]
     Active Substance: CARVEDILOL
     Indication: CARDIAC FAILURE CHRONIC
     Dosage: 6.25 MG, BID
     Route: 048
     Dates: start: 20130315
  2. BUMETANIDE. [Concomitant]
     Active Substance: BUMETANIDE
     Indication: CARDIAC FAILURE CHRONIC
     Dosage: 3 MG, QD
     Route: 048
     Dates: start: 20150915
  3. SPIRONOLACTONE. [Concomitant]
     Active Substance: SPIRONOLACTONE
     Indication: CARDIAC FAILURE CHRONIC
     Dosage: 25 MG, QD
     Route: 048
     Dates: start: 20130214
  4. ENTRESTO [Suspect]
     Active Substance: SACUBITRIL\VALSARTAN
     Dosage: 200 MG (97MG OF SACUBITRIL AND 103MG OF VALSARTAN), BID
     Route: 048
     Dates: start: 20161128, end: 20170711
  5. BUMETANIDE. [Concomitant]
     Active Substance: BUMETANIDE
     Dosage: 2 MG, QD
     Route: 048
     Dates: start: 20150915
  6. ENTRESTO [Suspect]
     Active Substance: SACUBITRIL\VALSARTAN
     Indication: CARDIAC FAILURE CHRONIC
     Dosage: 100 MG (49MG OF SACUBITRIL AND 51MG OF VALSARTAN), BID
     Route: 048
     Dates: start: 20161102, end: 20161128

REACTIONS (13)
  - Dyspnoea [Recovered/Resolved]
  - Multiple organ dysfunction syndrome [Fatal]
  - Rales [Recovered/Resolved]
  - Cardiac failure [Recovered/Resolved]
  - Oedema [Recovered/Resolved]
  - Sepsis [Fatal]
  - Vomiting [Recovered/Resolved]
  - Orthopnoea [Recovered/Resolved]
  - Blood potassium increased [Unknown]
  - Cholangitis [Fatal]
  - Cardiac failure congestive [Recovered/Resolved]
  - Dyspnoea at rest [Recovered/Resolved]
  - Blood creatinine increased [Unknown]

NARRATIVE: CASE EVENT DATE: 20170110
